FAERS Safety Report 12508835 (Version 1)
Quarter: 2016Q2

REPORT INFORMATION
  Report Type: Spontaneous
  Country: US (occurrence: US)
  Receive Date: 20160629
  Receipt Date: 20160629
  Transmission Date: 20160815
  Serious: Yes (Other)
  Sender: FDA-Public Use
  Company Number: US-ASTRAZENECA-2016SE68885

PATIENT
  Age: 55 Year
  Sex: Female

DRUGS (7)
  1. METOPROLOL TARTRATE. [Suspect]
     Active Substance: METOPROLOL TARTRATE
     Route: 048
     Dates: start: 2005
  2. MELOXICAM. [Suspect]
     Active Substance: MELOXICAM
     Route: 065
  3. ENAPRIL [Concomitant]
     Active Substance: ENALAPRIL
     Dates: start: 2005
  4. CRESTOR [Suspect]
     Active Substance: ROSUVASTATIN CALCIUM
     Indication: BLOOD CHOLESTEROL ABNORMAL
     Route: 048
  5. CELECOXIB. [Suspect]
     Active Substance: CELECOXIB
     Route: 065
  6. CELEBREX [Suspect]
     Active Substance: CELECOXIB
     Route: 065
  7. ALLOPURINOL SODIUM. [Concomitant]
     Active Substance: ALLOPURINOL SODIUM
     Dates: start: 2005

REACTIONS (5)
  - Drug ineffective [Recovered/Resolved]
  - Peripheral swelling [Unknown]
  - Insomnia [Unknown]
  - Muscle spasms [Unknown]
  - Myocardial infarction [Unknown]

NARRATIVE: CASE EVENT DATE: 2005
